FAERS Safety Report 4824403-6 (Version None)
Quarter: 2005Q4

REPORT INFORMATION
  Report Type: 
  Country: None (occurrence: None)
  Receive Date: 20051108
  Receipt Date: 20051028
  Transmission Date: 20060501
  Serious: Yes (Hospitalization)
  Sender: FDA-Public Use
  Company Number: 200509488

PATIENT
  Age: 60 Year
  Sex: Male

DRUGS (8)
  1. BOTOX [Suspect]
     Indication: MUSCLE SPASTICITY
     Dosage: 500 UNITS ONCE IM
     Route: 030
     Dates: start: 20051003
  2. COPAXONE [Concomitant]
  3. LIPITOR [Concomitant]
  4. PROZAC [Concomitant]
  5. EFFEXOR [Concomitant]
  6. DURAGESIC-100 [Concomitant]
  7. TYLOX [Concomitant]
  8. VICODIN [Concomitant]

REACTIONS (6)
  - AGITATION [None]
  - CONFUSIONAL STATE [None]
  - DIFFICULTY IN WALKING [None]
  - DYSKINESIA [None]
  - HALLUCINATIONS, MIXED [None]
  - RESTLESSNESS [None]
